FAERS Safety Report 22651690 (Version 1)
Quarter: 2023Q2

REPORT INFORMATION
  Report Type: Spontaneous
  Country: US (occurrence: US)
  Receive Date: 20230628
  Receipt Date: 20230628
  Transmission Date: 20230721
  Serious: No
  Sender: FDA-Public Use
  Company Number: US-CTI BIOPHARMA-2023US03518

PATIENT

DRUGS (6)
  1. VONJO [Suspect]
     Active Substance: PACRITINIB
     Indication: Essential thrombocythaemia
     Dosage: 200 MG, BID
     Route: 048
     Dates: start: 20230310
  2. ATORVASTATIN [Concomitant]
     Active Substance: ATORVASTATIN
  3. NIFEDIPINE [Concomitant]
     Active Substance: NIFEDIPINE
  4. VITAMIN D3 [Concomitant]
     Active Substance: CHOLECALCIFEROL
  5. CETIRIZINE [Concomitant]
     Active Substance: CETIRIZINE HYDROCHLORIDE
  6. ASPIRIN [Concomitant]
     Active Substance: ASPIRIN

REACTIONS (4)
  - Full blood count abnormal [Unknown]
  - Depressed mood [Unknown]
  - Product dose omission issue [Unknown]
  - Taste disorder [Unknown]
